FAERS Safety Report 9331218 (Version 2)
Quarter: 2013Q4

REPORT INFORMATION
  Report Type: Spontaneous
  Country: US (occurrence: US)
  Receive Date: 20130605
  Receipt Date: 20131030
  Transmission Date: 20140711
  Serious: Yes (Hospitalization)
  Sender: FDA-Public Use
  Company Number: US-B.I. PHARMACEUTICALS,INC./RIDGEFIELD-2013-BI-15776BP

PATIENT
  Sex: Female
  Weight: 122.47 kg

DRUGS (13)
  1. PRADAXA [Suspect]
     Indication: ATRIAL FIBRILLATION
     Dosage: 300 MG
     Route: 048
     Dates: start: 20110211, end: 20120127
  2. ANTIVERT [Concomitant]
  3. CRESTOR [Concomitant]
     Dosage: 40 MG
  4. LASIX [Concomitant]
     Dosage: 40 MG
  5. METOPROLOL [Concomitant]
     Dosage: 50 MG
  6. PHENERGAN [Concomitant]
  7. SYNTHROID [Concomitant]
     Dosage: 125 MCG
  8. SENOKOT S [Concomitant]
  9. NOVOLIN [Concomitant]
  10. VALIUM [Concomitant]
     Indication: MENIERE^S DISEASE
     Dosage: 8 MG
     Route: 048
  11. VALIUM [Concomitant]
     Indication: VERTIGO POSITIONAL
  12. SEPTRA [Concomitant]
     Dosage: 5 MG
  13. LANTUS [Concomitant]
     Dosage: 28 U
     Route: 058

REACTIONS (3)
  - Haemorrhage intracranial [Unknown]
  - Subdural hygroma [Unknown]
  - Anaemia [Unknown]
